FAERS Safety Report 9020010 (Version 1)
Quarter: 2013Q1

REPORT INFORMATION
  Report Type: Spontaneous
  Country: US (occurrence: US)
  Receive Date: 20130119
  Receipt Date: 20130119
  Transmission Date: 20140127
  Serious: No
  Sender: FDA-Public Use
  Company Number: US-ALLERGAN-1211443US

PATIENT
  Sex: 0

DRUGS (2)
  1. BOTOX? [Suspect]
     Indication: TORTICOLLIS
     Dosage: UNK
     Route: 030
     Dates: start: 20120614, end: 20120614
  2. BOTOX? [Suspect]
     Dosage: UNK
     Route: 030
     Dates: start: 201205, end: 201205

REACTIONS (2)
  - Incorrect dose administered [Unknown]
  - Myalgia [Not Recovered/Not Resolved]
